FAERS Safety Report 9310073 (Version 3)
Quarter: 2013Q3

REPORT INFORMATION
  Report Type: Spontaneous
  Country: US (occurrence: US)
  Receive Date: 20130527
  Receipt Date: 20130805
  Transmission Date: 20140515
  Serious: Yes (Hospitalization)
  Sender: FDA-Public Use
  Company Number: US-BIOGENIDEC-2013BI045862

PATIENT
  Age: 22 Year
  Sex: Male

DRUGS (1)
  1. TYSABRI [Suspect]
     Indication: MULTIPLE SCLEROSIS
     Route: 042
     Dates: start: 20111206

REACTIONS (7)
  - Bipolar disorder [Unknown]
  - Panic disorder [Unknown]
  - Agoraphobia [Unknown]
  - Mental disorder [Unknown]
  - Cognitive disorder [Unknown]
  - Suicidal ideation [Unknown]
  - General physical health deterioration [Not Recovered/Not Resolved]
